FAERS Safety Report 9677849 (Version 1)
Quarter: 2013Q4

REPORT INFORMATION
  Report Type: Spontaneous
  Country: US (occurrence: None)
  Receive Date: 20131107
  Receipt Date: 20131107
  Transmission Date: 20140711
  Serious: Yes (Other)
  Sender: FDA-Public Use
  Company Number: None

PATIENT
  Age: 15 Year
  Sex: Female
  Weight: 52 kg

DRUGS (7)
  1. INFLIXIMAB [Suspect]
     Indication: POLYARTHRITIS
  2. LYRICA [Concomitant]
  3. NAPROXEN [Concomitant]
  4. OCP [Concomitant]
  5. AMITRIPTYLINE [Concomitant]
  6. METHOTREXATE [Concomitant]
  7. FOLIC ACID [Concomitant]

REACTIONS (1)
  - Lymphoma [None]
